FAERS Safety Report 19412629 (Version 1)
Quarter: 2021Q2

REPORT INFORMATION
  Report Type: Other
  Country: BR (occurrence: BR)
  Receive Date: 20210614
  Receipt Date: 20210614
  Transmission Date: 20210717
  Serious: Yes (Other)
  Sender: FDA-Public Use
  Company Number: BR-ROCHE-2845721

PATIENT
  Age: 57 Year
  Sex: Female

DRUGS (10)
  1. TOPIRAMATE. [Concomitant]
     Active Substance: TOPIRAMATE
     Indication: EPILEPSY
  2. GARDENAL [Concomitant]
     Active Substance: PHENOBARBITAL
     Dosage: 1 TABLET IN THE EVENING
  3. DONEPEZIL HYDROCHLORIDE. [Concomitant]
     Active Substance: DONEPEZIL HYDROCHLORIDE
     Dosage: HALF A TABLET IS USED AT LUNCH AND OTHER HALF IS USED AT DINNER
     Dates: start: 202105
  4. LABIRIN [Concomitant]
     Active Substance: BETAHISTINE
     Indication: DIZZINESS
  5. OCREVUS [Suspect]
     Active Substance: OCRELIZUMAB
     Indication: MULTIPLE SCLEROSIS
     Route: 042
     Dates: start: 20200522
  6. PREDNISOLONE. [Concomitant]
     Active Substance: PREDNISOLONE
  7. GABAPENTIN. [Concomitant]
     Active Substance: GABAPENTIN
     Indication: PAIN
  8. VONAU [Concomitant]
     Active Substance: ONDANSETRON HYDROCHLORIDE
     Indication: NAUSEA
  9. LACOSAMIDE. [Concomitant]
     Active Substance: LACOSAMIDE
     Indication: MUSCLE SPASMS
  10. LACOSAMIDE. [Concomitant]
     Active Substance: LACOSAMIDE

REACTIONS (11)
  - Syncope [Unknown]
  - COVID-19 [Recovered/Resolved]
  - Mass [Unknown]
  - Haemorrhage [Recovering/Resolving]
  - Malaise [Unknown]
  - Cognitive disorder [Unknown]
  - Fall [Unknown]
  - Eating disorder [Recovering/Resolving]
  - Fatigue [Unknown]
  - Balance disorder [Unknown]
  - Speech disorder [Unknown]

NARRATIVE: CASE EVENT DATE: 202103
